FAERS Safety Report 20740373 (Version 2)
Quarter: 2022Q2

REPORT INFORMATION
  Report Type: Spontaneous
  Country: None (occurrence: US)
  Receive Date: 20220422
  Receipt Date: 20220505
  Transmission Date: 20220721
  Serious: No
  Sender: FDA-Public Use
  Company Number: US-Nephron Sterile Compounding Center-2128077

PATIENT
  Age: 63 Year
  Sex: Male
  Weight: 75 kg

DRUGS (1)
  1. METHACHOLINE CHLORIDE [Suspect]
     Active Substance: METHACHOLINE CHLORIDE
     Indication: Pulmonary function challenge test
     Route: 055
     Dates: start: 20220406, end: 20220406

REACTIONS (1)
  - Drug ineffective [None]

NARRATIVE: CASE EVENT DATE: 20220406
